FAERS Safety Report 5131221-0 (Version None)
Quarter: 2006Q4

REPORT INFORMATION
  Report Type: 
  Country: None (occurrence: None)
  Receive Date: 20061020
  Receipt Date: 20061010
  Transmission Date: 20070319
  Serious: Yes (Other)
  Sender: FDA-Public Use
  Company Number: US-JNJFOC-20061002597

PATIENT
  Sex: Female

DRUGS (4)
  1. TOPAMAX [Suspect]
     Route: 048
  2. TOPAMAX [Suspect]
     Route: 048
  3. TOPAMAX [Suspect]
     Indication: AFFECTIVE DISORDER
     Route: 048
  4. LOMICTAL [Concomitant]
     Indication: AFFECTIVE DISORDER

REACTIONS (3)
  - DYSPNOEA [None]
  - MONOPLEGIA [None]
  - SPEECH DISORDER [None]
